FAERS Safety Report 13545045 (Version 2)
Quarter: 2017Q2

REPORT INFORMATION
  Report Type: Report from Study
  Country: BR (occurrence: BR)
  Receive Date: 20170515
  Receipt Date: 20170527
  Transmission Date: 20170830
  Serious: Yes (Death, Life-Threatening, Hospitalization, Other)
  Sender: FDA-Public Use
  Company Number: BR-ROCHE-1934302

PATIENT
  Age: 60 Year
  Sex: Female
  Weight: 60 kg

DRUGS (8)
  1. MABTHERA [Suspect]
     Active Substance: RITUXIMAB
     Indication: NON-HODGKIN^S LYMPHOMA
     Route: 042
     Dates: start: 20170317, end: 20170317
  2. PREDNISOLONE. [Suspect]
     Active Substance: PREDNISOLONE
     Indication: NON-HODGKIN^S LYMPHOMA
     Route: 065
  3. DOXORUBICIN [Suspect]
     Active Substance: DOXORUBICIN
     Indication: NON-HODGKIN^S LYMPHOMA
     Route: 065
  4. CYCLOPHOSPHAMIDE. [Suspect]
     Active Substance: CYCLOPHOSPHAMIDE
     Indication: NON-HODGKIN^S LYMPHOMA
     Route: 065
  5. BENADRYL (BRAZIL) [Concomitant]
     Active Substance: DIPHENHYDRAMINE HYDROCHLORIDE
  6. HYDROCORTISONE. [Concomitant]
     Active Substance: HYDROCORTISONE
  7. RANITIDINE. [Concomitant]
     Active Substance: RANITIDINE
  8. VINCRISTINE [Suspect]
     Active Substance: VINCRISTINE
     Indication: NON-HODGKIN^S LYMPHOMA
     Route: 065

REACTIONS (7)
  - Death [Fatal]
  - Chest pain [Not Recovered/Not Resolved]
  - Hypersensitivity [Recovering/Resolving]
  - Depressed level of consciousness [Not Recovered/Not Resolved]
  - Cardio-respiratory arrest [Recovered/Resolved]
  - Dyspnoea [Not Recovered/Not Resolved]
  - Respiratory failure [Unknown]

NARRATIVE: CASE EVENT DATE: 20170317
